FAERS Safety Report 12093165 (Version 1)
Quarter: 2016Q1

REPORT INFORMATION
  Report Type: Spontaneous
  Country: US (occurrence: US)
  Receive Date: 20160219
  Receipt Date: 20160219
  Transmission Date: 20160526
  Serious: Yes (Other)
  Sender: FDA-Public Use
  Company Number: US-TEVA-589075USA

PATIENT
  Sex: Male

DRUGS (5)
  1. ZARONTIN [Interacting]
     Active Substance: ETHOSUXIMIDE
     Route: 065
  2. AMPHETAMINE W/DEXTROAMPHETAMINE [Suspect]
     Active Substance: AMPHETAMINE SULFATE\DEXTROAMPHETAMINE
     Route: 065
  3. RISPERIDONE. [Interacting]
     Active Substance: RISPERIDONE
     Route: 065
  4. KEPPRA [Interacting]
     Active Substance: LEVETIRACETAM
     Route: 065
  5. LAMICTAL [Interacting]
     Active Substance: LAMOTRIGINE
     Route: 065

REACTIONS (5)
  - Drug interaction [Unknown]
  - Aggression [Unknown]
  - Hallucination [Unknown]
  - Seizure [Unknown]
  - Abnormal behaviour [Unknown]
